FAERS Safety Report 6641217-5 (Version None)
Quarter: 2010Q1

REPORT INFORMATION
  Report Type: 
  Country: None (occurrence: None)
  Receive Date: 20100318
  Receipt Date: 20100315
  Transmission Date: 20100710
  Serious: Yes (Death, Hospitalization, Other)
  Sender: FDA-Public Use
  Company Number: PHEH2007US03601

PATIENT
  Sex: Female
  Weight: 61.678 kg

DRUGS (31)
  1. ZOMETA [Suspect]
     Indication: BREAST CANCER
     Dosage: 4 MG
  2. AREDIA [Suspect]
     Dosage: 90MG
     Dates: start: 20020304
  3. TAMOXIFEN CITRATE [Concomitant]
  4. RADIATION THERAPY [Concomitant]
  5. NAVELBINE [Concomitant]
     Dosage: 40 MG
  6. ALOXI [Concomitant]
  7. DECADRON [Concomitant]
     Dosage: 10 MG
  8. PROCRIT                            /00909301/ [Concomitant]
     Dosage: 40,000 UNITS
  9. DOXIL [Concomitant]
  10. RED BLOOD CELLS [Concomitant]
  11. MORPHINE [Concomitant]
  12. CHEMOTHERAPEUTICS NOS [Concomitant]
  13. LETROZOLE [Concomitant]
     Dosage: 2.5 MG
  14. LORTAB [Concomitant]
  15. MS CONTIN [Concomitant]
     Dosage: 100 MG, BID
  16. NEURONTIN [Concomitant]
     Dosage: 300 MG, UNK
  17. PREDNISONE [Concomitant]
     Dosage: 20 MG, UNK
  18. FEMARA [Concomitant]
     Dosage: 2.5 MG, UNK
  19. CEPHALEXIN [Concomitant]
     Dosage: 500 MG, UNK
  20. ANZEMET [Concomitant]
     Dosage: 120  MG
  21. TAXOTERE [Concomitant]
     Dosage: 50 MG
  22. BENADRYL ^ACHE^ [Concomitant]
     Dosage: 25 MG
  23. FASLODEX [Concomitant]
     Dosage: 250 MG
  24. COMPAZINE [Concomitant]
     Dosage: 10 MG / Q6 PRN
  25. SENOKOT                                 /UNK/ [Concomitant]
     Dosage: UNK / 2 TABLETES Q12 PRN
  26. DEXAMETHASONE [Concomitant]
     Dosage: 10 MG
  27. ZOFRAN [Concomitant]
     Dosage: 32 MG
  28. ROCEPHIN [Concomitant]
     Dosage: 4 GM
     Route: 042
  29. ARANESP [Concomitant]
     Indication: ANAEMIA
     Dosage: 100 MCG
  30. MORPHINE SULFATE [Concomitant]
     Dosage: 30 MG  / PRN
  31. ASPIRIN [Concomitant]
     Dosage: UNK / QD

REACTIONS (63)
  - ADENOMA BENIGN [None]
  - ANAEMIA [None]
  - ANXIETY [None]
  - ARTERIOSCLEROSIS [None]
  - ARTHRALGIA [None]
  - ARTHROPATHY [None]
  - ASPIRATION PLEURAL CAVITY [None]
  - ASTHENIA [None]
  - BACK PAIN [None]
  - BONE DENSITY DECREASED [None]
  - BONE DISORDER [None]
  - BONE LESION [None]
  - BONE NEOPLASM MALIGNANT [None]
  - BRAIN CANCER METASTATIC [None]
  - BRONCHITIS [None]
  - CLOSED FRACTURE MANIPULATION [None]
  - CONSTIPATION [None]
  - DEATH [None]
  - DECREASED APPETITE [None]
  - DECREASED INTEREST [None]
  - DEFORMITY [None]
  - DEHYDRATION [None]
  - DEPRESSED MOOD [None]
  - DISCOMFORT [None]
  - EMOTIONAL DISTRESS [None]
  - FAECES DISCOLOURED [None]
  - FATIGUE [None]
  - FEMUR FRACTURE [None]
  - FLUID RETENTION [None]
  - GASTROOESOPHAGEAL REFLUX DISEASE [None]
  - GENERAL PHYSICAL HEALTH DETERIORATION [None]
  - HAND-FOOT-AND-MOUTH DISEASE [None]
  - HEPATIC CANCER METASTATIC [None]
  - HIP FRACTURE [None]
  - HYPERTENSION [None]
  - HYPOAESTHESIA [None]
  - HYPOAESTHESIA ORAL [None]
  - HYPOPHAGIA [None]
  - INFECTION [None]
  - LIBIDO DECREASED [None]
  - MALAISE [None]
  - MASTECTOMY [None]
  - MELAENA [None]
  - METASTASES TO BONE [None]
  - MOUTH ULCERATION [None]
  - NAUSEA [None]
  - OSTEONECROSIS [None]
  - OSTEOPOROSIS [None]
  - PAIN [None]
  - PARAESTHESIA [None]
  - PLEURAL EFFUSION [None]
  - PNEUMONIA [None]
  - POLYARTHRITIS [None]
  - POLYP [None]
  - RECTAL HAEMORRHAGE [None]
  - RENAL CYST [None]
  - RESPIRATORY DISTRESS [None]
  - ROTATOR CUFF REPAIR [None]
  - SCOLIOSIS [None]
  - SEBORRHOEIC KERATOSIS [None]
  - VERTEBROPLASTY [None]
  - VISION BLURRED [None]
  - WEIGHT DECREASED [None]
